FAERS Safety Report 21562036 (Version 1)
Quarter: 2022Q4

REPORT INFORMATION
  Report Type: Spontaneous
  Country: US (occurrence: None)
  Receive Date: 20221106
  Receipt Date: 20221106
  Transmission Date: 20230113
  Serious: Yes (Disabling)
  Sender: FDA-Public Use
  Company Number: None

PATIENT
  Age: 66 Year
  Sex: Female
  Weight: 120.6 kg

DRUGS (1)
  1. SAXENDA [Suspect]
     Active Substance: LIRAGLUTIDE

REACTIONS (6)
  - Adjustment disorder with depressed mood [None]
  - Lethargy [None]
  - Feeling abnormal [None]
  - Therapy cessation [None]
  - Apathy [None]
  - Asthenia [None]

NARRATIVE: CASE EVENT DATE: 20221031
